FAERS Safety Report 26037931 (Version 2)
Quarter: 2025Q4

REPORT INFORMATION
  Report Type: Spontaneous
  Country: EU (occurrence: EU)
  Receive Date: 20251112
  Receipt Date: 20251127
  Transmission Date: 20260118
  Serious: Yes (Death, Other)
  Sender: BAXTER
  Company Number: None

PATIENT
  Sex: Female

DRUGS (6)
  1. CYCLOPHOSPHAMIDE [Suspect]
     Active Substance: CYCLOPHOSPHAMIDE
     Indication: Systemic lupus erythematosus
     Dosage: 4600 MG, TOTAL, EIGHT PULSES WITH A TOTAL DOSE OF  4,600 MG
     Route: 065
     Dates: start: 2002
  2. CYCLOPHOSPHAMIDE [Suspect]
     Active Substance: CYCLOPHOSPHAMIDE
     Dosage: PULSE
     Route: 065
     Dates: start: 2003
  3. CYCLOPHOSPHAMIDE [Suspect]
     Active Substance: CYCLOPHOSPHAMIDE
     Dosage: PULSE 9 IN HER SECOND?COURSE OF 4,500 MG, OR 9,100 MG
     Route: 065
     Dates: start: 2004
  4. CYCLOPHOSPHAMIDE [Suspect]
     Active Substance: CYCLOPHOSPHAMIDE
     Dosage: TWO MORE CYCLOPHOSPHAMIDE PULSES WERE GIVEN
     Route: 065
     Dates: start: 2004
  5. AZATHIOPRINE [Concomitant]
     Active Substance: AZATHIOPRINE
     Indication: Systemic lupus erythematosus
     Dosage: UNK
     Route: 065
     Dates: start: 2003
  6. MYCOPHENOLATE MOFETIL [Concomitant]
     Active Substance: MYCOPHENOLATE MOFETIL
     Indication: Systemic lupus erythematosus
     Dosage: UNK
     Route: 065

REACTIONS (15)
  - Death [Fatal]
  - Progressive multifocal leukoencephalopathy [Unknown]
  - Headache [Unknown]
  - Muscular weakness [Unknown]
  - Hypoaesthesia [Unknown]
  - Polyarthritis [Unknown]
  - Pain [Unknown]
  - Visual impairment [Unknown]
  - Visual field defect [Unknown]
  - Generalised tonic-clonic seizure [Unknown]
  - Central nervous system lesion [Unknown]
  - Speech disorder [Unknown]
  - Dysphagia [Unknown]
  - Seizure [Unknown]
  - JC virus infection [Unknown]

NARRATIVE: CASE EVENT DATE: 20040101
